FAERS Safety Report 6180323-9 (Version None)
Quarter: 2009Q2

REPORT INFORMATION
  Report Type: 
  Country: None (occurrence: None)
  Receive Date: 20090506
  Receipt Date: 20090424
  Transmission Date: 20091009
  Serious: Yes (Hospitalization, Other)
  Sender: FDA-Public Use
  Company Number: US-CELGENEUS-163-21880-09042361

PATIENT
  Age: 71 Year
  Sex: Male

DRUGS (10)
  1. REVLIMID [Suspect]
     Indication: DIFFUSE LARGE B-CELL LYMPHOMA
     Route: 048
     Dates: end: 20090401
  2. RITUXIMAB [Suspect]
     Indication: DIFFUSE LARGE B-CELL LYMPHOMA
     Route: 065
     Dates: end: 20090401
  3. ASPIRIN [Concomitant]
     Indication: DRUG USE FOR UNKNOWN INDICATION
     Route: 048
  4. ASPIRIN [Concomitant]
     Indication: DEEP VEIN THROMBOSIS
     Route: 065
     Dates: start: 20090401
  5. ASPIRIN [Concomitant]
     Indication: PULMONARY EMBOLISM
  6. LISINOPRIL [Concomitant]
     Indication: DRUG USE FOR UNKNOWN INDICATION
     Route: 048
     Dates: start: 20090401
  7. MAGNESIUM SULFATE [Concomitant]
     Indication: DRUG USE FOR UNKNOWN INDICATION
     Route: 051
     Dates: start: 20090401
  8. PROTON PUMP INHIBITOR [Concomitant]
     Indication: PROPHYLAXIS
     Route: 065
     Dates: start: 20090401
  9. REMERON [Concomitant]
     Route: 048
     Dates: start: 20090401
  10. POTASSIUM CHLORIDE [Concomitant]
     Route: 065
     Dates: start: 20090424

REACTIONS (5)
  - DEEP VEIN THROMBOSIS [None]
  - HYPONATRAEMIA [None]
  - NEUTROPENIA [None]
  - PANCYTOPENIA [None]
  - PULMONARY EMBOLISM [None]
